FAERS Safety Report 9203541 (Version 1)
Quarter: 2013Q2

REPORT INFORMATION
  Report Type: Spontaneous
  Country: AU (occurrence: AU)
  Receive Date: 20130402
  Receipt Date: 20130402
  Transmission Date: 20140414
  Serious: Yes (Hospitalization, Other)
  Sender: FDA-Public Use
  Company Number: PHHY2013AU030475

PATIENT
  Age: 88 Year
  Sex: Male

DRUGS (1)
  1. ACLASTA [Suspect]
     Dosage: 5 MG, UNK
     Route: 042
     Dates: start: 20130326

REACTIONS (8)
  - Hypotension [Unknown]
  - Fall [Unknown]
  - Nerve compression [Unknown]
  - Neuralgia [Unknown]
  - Muscular weakness [Unknown]
  - Hypokinesia [Unknown]
  - Nausea [Unknown]
  - Dizziness [Unknown]
